FAERS Safety Report 15061030 (Version 1)
Quarter: 2018Q2

REPORT INFORMATION
  Report Type: Spontaneous
  Country: IT (occurrence: IT)
  Receive Date: 20180625
  Receipt Date: 20180625
  Transmission Date: 20180711
  Serious: Yes (Life-Threatening)
  Sender: FDA-Public Use
  Company Number: IT-PFIZER INC-2018254427

PATIENT
  Age: 62 Year
  Sex: Male
  Weight: 65 kg

DRUGS (5)
  1. ROCEFIN [Suspect]
     Active Substance: CEFTRIAXONE SODIUM
     Dosage: UNK
     Route: 051
     Dates: start: 20180404
  2. AZITHROMYCIN ANHYDROUS. [Suspect]
     Active Substance: AZITHROMYCIN ANHYDROUS
     Indication: PNEUMONITIS
     Dosage: UNK
     Route: 048
     Dates: start: 20180404
  3. DIAZEPAM. [Suspect]
     Active Substance: DIAZEPAM
     Dosage: 20 GTT, AS NEEDED
     Route: 048
     Dates: start: 20180423, end: 20180510
  4. QUETIAPINE FUMARATE. [Suspect]
     Active Substance: QUETIAPINE FUMARATE
     Dosage: 200 MG, 1X/DAY
     Route: 048
     Dates: start: 20180423, end: 20180510
  5. ZOLPIDEM TARTRATE. [Suspect]
     Active Substance: ZOLPIDEM TARTRATE
     Dosage: 10 MG, 1X/DAY
     Route: 048
     Dates: start: 20180423, end: 20180510

REACTIONS (2)
  - Erythema [Not Recovered/Not Resolved]
  - Toxic epidermal necrolysis [Not Recovered/Not Resolved]

NARRATIVE: CASE EVENT DATE: 20180506
